FAERS Safety Report 7540993-7 (Version None)
Quarter: 2011Q2

REPORT INFORMATION
  Report Type: 
  Country: None (occurrence: None)
  Receive Date: 20110610
  Receipt Date: 20110526
  Transmission Date: 20111010
  Serious: No
  Sender: FDA-Public Use
  Company Number: US-B.I. PHARMACEUTICALS,INC./RIDGEFIELD-2011-BP-14257BP

PATIENT
  Age: 88 Year
  Sex: Female

DRUGS (5)
  1. M.V.I. [Concomitant]
     Indication: SUPPLEMENTATION THERAPY
  2. CAPTOPRIL [Concomitant]
     Indication: HYPERTENSION
  3. NAPROXEN (ALEVE) [Concomitant]
     Indication: BACK PAIN
  4. OSCAL [Concomitant]
     Indication: SUPPLEMENTATION THERAPY
  5. SPIRIVA [Suspect]
     Indication: CHRONIC OBSTRUCTIVE PULMONARY DISEASE
     Dosage: 18 MCG
     Route: 055
     Dates: start: 20070101

REACTIONS (1)
  - DYSPNOEA [None]
